FAERS Safety Report 8913958 (Version 1)
Quarter: 2012Q4

REPORT INFORMATION
  Report Type: Spontaneous
  Country: US (occurrence: None)
  Receive Date: 20121115
  Receipt Date: 20121115
  Transmission Date: 20130627
  Serious: Yes (Hospitalization)
  Sender: FDA-Public Use
  Company Number: None

PATIENT
  Age: 53 Year
  Sex: Male
  Weight: 136.08 kg

DRUGS (1)
  1. SEROQUEL 200MG [Suspect]
     Indication: SCHIZOPHRENIA, PARANOID TYPE
     Route: 048
     Dates: start: 20120422, end: 20121019

REACTIONS (5)
  - Product substitution issue [None]
  - Paranoia [None]
  - Hallucination [None]
  - Hostility [None]
  - Drug ineffective [None]
